FAERS Safety Report 14628149 (Version 1)
Quarter: 2018Q1

REPORT INFORMATION
  Report Type: Spontaneous
  Country: US (occurrence: US)
  Receive Date: 20180312
  Receipt Date: 20180312
  Transmission Date: 20180509
  Serious: No
  Sender: FDA-Public Use
  Company Number: US-ALLERGAN-1803954US

PATIENT
  Age: 57 Year
  Sex: Female
  Weight: 49.89 kg

DRUGS (2)
  1. ESTRACE [Suspect]
     Active Substance: ESTRADIOL
     Indication: VULVOVAGINAL DRYNESS
     Dosage: 1 G, Q WEEK
     Route: 065
     Dates: start: 201709, end: 20171224
  2. ESTRACE [Suspect]
     Active Substance: ESTRADIOL
     Indication: DYSPAREUNIA

REACTIONS (4)
  - Breast pain [Unknown]
  - Breast mass [Recovered/Resolved]
  - Nipple disorder [Unknown]
  - Breast tenderness [Recovered/Resolved]
